FAERS Safety Report 23117359 (Version 2)
Quarter: 2023Q4

REPORT INFORMATION
  Report Type: Spontaneous
  Country: US (occurrence: US)
  Receive Date: 20231027
  Receipt Date: 20231109
  Transmission Date: 20240110
  Serious: Yes (Life-Threatening)
  Sender: FDA-Public Use
  Company Number: US-PURDUE PHARMA-USA-2023-0305536

PATIENT
  Age: 66 Year
  Sex: Male
  Weight: 79.38 kg

DRUGS (4)
  1. OXYCODONE HYDROCHLORIDE [Suspect]
     Active Substance: OXYCODONE HYDROCHLORIDE
     Indication: Pain
     Dosage: 10 MILLIGRAM, Q4H
     Route: 048
     Dates: start: 20231013, end: 20231026
  2. OXYCODONE HYDROCHLORIDE [Suspect]
     Active Substance: OXYCODONE HYDROCHLORIDE
     Indication: Neuroborreliosis
  3. OXYCODONE HYDROCHLORIDE [Suspect]
     Active Substance: OXYCODONE HYDROCHLORIDE
     Indication: Lyme disease
  4. OXYCODONE HYDROCHLORIDE [Suspect]
     Active Substance: OXYCODONE HYDROCHLORIDE
     Indication: Pain management

REACTIONS (6)
  - Drug withdrawal syndrome [Unknown]
  - Dizziness [Unknown]
  - Pain [Unknown]
  - Product formulation issue [Unknown]
  - Drug ineffective [Unknown]
  - Sleep disorder [Unknown]

NARRATIVE: CASE EVENT DATE: 20231013
